FAERS Safety Report 6266944-3 (Version None)
Quarter: 2009Q3

REPORT INFORMATION
  Report Type: 
  Country: None (occurrence: None)
  Receive Date: 20090714
  Receipt Date: 20090703
  Transmission Date: 20100115
  Serious: No
  Sender: FDA-Public Use
  Company Number: NL-ASTRAZENECA-2009SE03413

PATIENT
  Age: 9187 Day
  Sex: Female

DRUGS (3)
  1. SEROQUEL XR [Suspect]
     Indication: SCHIZOPHRENIA
     Route: 048
     Dates: start: 20090528, end: 20090529
  2. SEROQUEL XR [Suspect]
     Dosage: DOSE REDUCED
     Route: 048
  3. ABILIFY [Concomitant]
     Indication: SCHIZOPHRENIA
     Route: 048
     Dates: start: 20090410, end: 20090611

REACTIONS (6)
  - ASTHENIA [None]
  - BLOOD GLUCOSE INCREASED [None]
  - DIZZINESS [None]
  - HEART RATE DECREASED [None]
  - HYPOTENSION [None]
  - PALLOR [None]
